FAERS Safety Report 17524254 (Version 1)
Quarter: 2020Q1

REPORT INFORMATION
  Report Type: Spontaneous
  Country: TR (occurrence: TR)
  Receive Date: 20200310
  Receipt Date: 20200310
  Transmission Date: 20200409
  Serious: Yes (Other)
  Sender: FDA-Public Use
  Company Number: TR-AGG-02-2020-2240

PATIENT

DRUGS (11)
  1. ANGIOTENSIN-CONVERTING ENZYME INHIBITOR (ACEI) [Concomitant]
  2. AGGRASTAT [Suspect]
     Active Substance: TIROFIBAN HYDROCHLORIDE
     Indication: ANTIPLATELET THERAPY
     Route: 041
  3. ASPIRIN. [Concomitant]
     Active Substance: ASPIRIN
     Dosage: DAPT LOADING DOSE
  4. CLOPIDOGREL [Concomitant]
     Active Substance: CLOPIDOGREL BISULFATE
     Dosage: DAPT MAINTENANCE DOSE
  5. ANGIOTENSIN II RECEPTOR BLOCKER (ARB) [Concomitant]
  6. CLOPIDOGREL [Concomitant]
     Active Substance: CLOPIDOGREL BISULFATE
     Dosage: DAPT LOADING DOSE
  7. ASPIRIN. [Concomitant]
     Active Substance: ASPIRIN
     Dosage: DAPT MAINTENANCE DOSE
  8. BETA BLOCKER (UNSPECIFIED) [Concomitant]
  9. HEPARIN [Concomitant]
     Active Substance: HEPARIN SODIUM
     Dosage: HEPARIN OR LOW MOLECULAR WEIGT HEPARIN (40-70 U/KG)
  10. STATIN THERAPY (NOT SPECIFIED) [Concomitant]
  11. AGGRASTAT [Suspect]
     Active Substance: TIROFIBAN HYDROCHLORIDE
     Indication: ANTIPLATELET THERAPY
     Route: 022

REACTIONS (1)
  - Coronary revascularisation [Unknown]
